FAERS Safety Report 5916593-9 (Version None)
Quarter: 2008Q4

REPORT INFORMATION
  Report Type: 
  Country: None (occurrence: None)
  Receive Date: 20081013
  Receipt Date: 20081001
  Transmission Date: 20090506
  Serious: Yes (Other)
  Sender: FDA-Public Use
  Company Number: JP-MERCK-0810USA00674M

PATIENT
  Age: 36 Year
  Sex: Female

DRUGS (7)
  1. PRIMAXIN [Suspect]
     Indication: INFECTION
     Route: 042
  2. FLOMOXEF SODIUM [Concomitant]
     Indication: INFECTION
     Route: 042
  3. PIPERACILLIN SODIUM [Concomitant]
     Indication: INFECTION
     Route: 042
  4. CHLORAMPHENICOL [Concomitant]
     Indication: VAGINAL DOUCHING
     Route: 067
  5. ULINASTATIN [Concomitant]
     Indication: VAGINAL DOUCHING
     Route: 067
  6. RITODRINE HYDROCHLORIDE [Concomitant]
     Indication: UTERINE CONTRACTIONS DURING PREGNANCY
     Route: 065
  7. ERYTHROMYCIN [Concomitant]
     Indication: INFECTION
     Route: 042

REACTIONS (2)
  - DRUG EXPOSURE DURING PREGNANCY [None]
  - PREMATURE LABOUR [None]
